FAERS Safety Report 7508538-5 (Version None)
Quarter: 2011Q2

REPORT INFORMATION
  Report Type: 
  Country: None (occurrence: None)
  Receive Date: 20110527
  Receipt Date: 20110518
  Transmission Date: 20111010
  Serious: Yes (Hospitalization, Other)
  Sender: FDA-Public Use
  Company Number: US-ELI_LILLY_AND_COMPANY-US201104005156

PATIENT
  Sex: Female
  Weight: 108.84 kg

DRUGS (18)
  1. BYETTA [Suspect]
     Indication: TYPE 2 DIABETES MELLITUS
     Dosage: 5 UG, BID
     Route: 058
     Dates: start: 20091112, end: 20091216
  2. ALLOPURINOL [Concomitant]
     Dosage: 100 MG, QD
     Route: 048
     Dates: start: 20110210
  3. DIAMOX SRC [Concomitant]
     Dosage: 250 MG, QD
     Route: 048
     Dates: start: 20110210
  4. LISINOPRIL [Concomitant]
     Dosage: 20 MG, QD
     Route: 048
     Dates: start: 20100422
  5. BUMETANIDE [Concomitant]
     Dosage: 0.5 MG, QD
     Route: 048
     Dates: start: 20101230
  6. BYSTOLIC [Concomitant]
     Dosage: 20 MG, QD
     Route: 048
     Dates: start: 20100507
  7. FISH OIL [Concomitant]
     Indication: SUPPLEMENTATION THERAPY
     Dosage: 1000 MG, QD
     Route: 048
     Dates: start: 20110210
  8. BYETTA [Suspect]
     Dosage: 10 UG, BID
     Route: 058
     Dates: start: 20091216, end: 20110413
  9. CALCIUM 500+D3 [Concomitant]
     Indication: SUPPLEMENTATION THERAPY
     Dosage: 500 MG, QD
     Route: 048
     Dates: start: 20110210
  10. CRESTOR [Concomitant]
     Dosage: 10 MG, QD
     Route: 048
     Dates: start: 20110210
  11. HUMULIN R [Concomitant]
     Dosage: UNK, QD
     Dates: start: 20110210
  12. BIOTIN [Concomitant]
     Dosage: 10 MG, BID
     Route: 048
     Dates: start: 20091112
  13. COUMADIN [Concomitant]
     Dosage: 6 MG, QD
     Route: 048
     Dates: start: 20090827
  14. GLUCOSAMINE [Concomitant]
     Dosage: 500 MG, QD
     Route: 048
     Dates: start: 20100226
  15. HYZAAR [Concomitant]
     Dosage: 25 MG, QD
     Route: 048
     Dates: start: 20090827
  16. OMEPRAZOLE [Concomitant]
     Dosage: 20 MG, QD
     Route: 048
     Dates: start: 20101007
  17. SYNTHROID [Concomitant]
     Dosage: 112 UG, QD
     Route: 048
     Dates: start: 20110210
  18. TYLENOL                                 /SCH/ [Concomitant]
     Dosage: 325 MG, PRN
     Route: 048
     Dates: start: 20091112

REACTIONS (6)
  - PANCREATITIS [None]
  - RENAL FAILURE [None]
  - DEHYDRATION [None]
  - OFF LABEL USE [None]
  - WEIGHT FLUCTUATION [None]
  - HYPERTENSION [None]
